FAERS Safety Report 4705359-3 (Version None)
Quarter: 2005Q3

REPORT INFORMATION
  Report Type: 
  Country: None (occurrence: None)
  Receive Date: 20050701
  Receipt Date: 20050629
  Transmission Date: 20060218
  Serious: Yes (Death)
  Sender: FDA-Public Use
  Company Number: JP-JNJFOC-20050605534

PATIENT
  Sex: Male

DRUGS (30)
  1. FENTANYL [Suspect]
     Dosage: DOSAGE UNSPECIFIED
     Route: 062
     Dates: start: 20050518, end: 20050527
  2. FENTANYL [Suspect]
     Indication: CANCER PAIN
     Dosage: DOSAGE UNSPECIFIED
     Route: 062
     Dates: start: 20050518, end: 20050527
  3. DUROTEP [Suspect]
     Indication: CANCER PAIN
     Route: 062
     Dates: start: 20050527, end: 20050603
  4. RISPERDAL [Suspect]
     Indication: DELIRIUM
     Dosage: 4 ML ADMINISTERED
     Route: 049
     Dates: start: 20050602, end: 20050603
  5. TAGAFUR URACIL [Concomitant]
     Route: 049
  6. GENTAMICIN SULFATE [Concomitant]
     Indication: WOUND INFECTION
  7. POVIDONE IODINE [Concomitant]
     Indication: WOUND INFECTION
  8. SODIUM THIOSULFATE [Concomitant]
     Indication: WOUND INFECTION
  9. SODIUM BICARBONATE-ANHYDROUS MONOBASIC SODIUM PHOSPHATE [Concomitant]
  10. SODIUM BICARBONATE-ANHYDROUS MONOBASIC SODIUM PHOSPHATE [Concomitant]
  11. SODIUM BICARBONATE-ANHYDROUS MONOBASIC SODIUM PHOSPHATE [Concomitant]
     Indication: CONSTIPATION
  12. GLYCERIN [Concomitant]
     Route: 054
  13. GLYCERIN [Concomitant]
     Indication: CONSTIPATION
     Route: 054
  14. TRIMEBUTINE MALEATE [Concomitant]
     Indication: CONSTIPATION
     Route: 049
  15. LIDOCAINE [Concomitant]
     Indication: PAIN
     Route: 061
  16. HYDROCORTISONE SODIUM SUCCINATE [Concomitant]
  17. SULBACTAM-CEFOPERAZONE [Concomitant]
  18. SULBACTAM-CEFOPERAZONE [Concomitant]
     Indication: INFECTION PROPHYLAXIS
  19. HALOPERIDOL [Concomitant]
  20. HYDROXYZINE HCL [Concomitant]
     Indication: DEPRESSION
  21. SENNA LEAF-SENNA POD [Concomitant]
     Indication: CONSTIPATION
  22. SODIUM PICOSULFATE [Concomitant]
     Indication: CONSTIPATION
     Route: 049
  23. MECOBALAMIN [Concomitant]
     Route: 049
  24. DIFENIDOL HYDROCHLORIDE [Concomitant]
     Route: 049
  25. DICLOFENAC SODIUM [Concomitant]
     Indication: PAIN
     Route: 049
  26. BROMHEXINE HYDROCHLORIDE [Concomitant]
     Route: 055
  27. MORPHINE HCL ELIXIR [Concomitant]
     Indication: PAIN
     Route: 049
  28. WHITE PETROLATUM [Concomitant]
     Route: 061
  29. WHITE PETROLATUM [Concomitant]
     Route: 061
  30. WHITE PETROLATUM [Concomitant]
     Indication: PROPHYLAXIS
     Route: 061

REACTIONS (2)
  - GUM NEOPLASM MALIGNANT STAGE UNSPECIFIED [None]
  - MALIGNANT NEOPLASM PROGRESSION [None]
